FAERS Safety Report 7402425-9 (Version None)
Quarter: 2011Q2

REPORT INFORMATION
  Report Type: 
  Country: None (occurrence: None)
  Receive Date: 20110408
  Receipt Date: 20110328
  Transmission Date: 20111010
  Serious: Yes (Hospitalization)
  Sender: FDA-Public Use
  Company Number: US-EISAI INC-E7272-00090-CLI-US

PATIENT
  Sex: Female
  Weight: 91 kg

DRUGS (1)
  1. ONTAK [Suspect]
     Route: 041
     Dates: start: 20110303, end: 20110303

REACTIONS (1)
  - ACUTE GRAFT VERSUS HOST DISEASE IN INTESTINE [None]
